FAERS Safety Report 25200630 (Version 1)
Quarter: 2025Q2

REPORT INFORMATION
  Report Type: Spontaneous
  Country: US (occurrence: US)
  Receive Date: 20250415
  Receipt Date: 20250415
  Transmission Date: 20250716
  Serious: No
  Sender: BAYER
  Company Number: US-BAYER-2025A048544

PATIENT
  Age: 75 Year
  Sex: Female

DRUGS (1)
  1. MIRALAX [Suspect]
     Active Substance: POLYETHYLENE GLYCOL 3350
     Indication: Colonoscopy
     Dosage: 8.3 OF MIRALAX MIX WITH 62OZ OF LIQUID
     Route: 048
     Dates: start: 20250407, end: 20250407

REACTIONS (2)
  - Product use in unapproved indication [None]
  - Product use complaint [None]

NARRATIVE: CASE EVENT DATE: 20250407
